FAERS Safety Report 6793001-X (Version None)
Quarter: 2010Q2

REPORT INFORMATION
  Report Type: 
  Country: None (occurrence: None)
  Receive Date: 20100624
  Receipt Date: 20081124
  Transmission Date: 20101027
  Serious: Yes (Hospitalization, Other)
  Sender: FDA-Public Use
  Company Number: US-PFIZER INC-2008100046

PATIENT
  Sex: Male
  Weight: 76 kg

DRUGS (9)
  1. SUTENT [Suspect]
     Indication: RENAL CELL CARCINOMA
     Dosage: DAILY
     Route: 048
     Dates: start: 20080808, end: 20081008
  2. PLAVIX [Concomitant]
  3. SIMVASTATIN [Concomitant]
  4. PRINIVIL [Concomitant]
  5. TOPROL-XL [Concomitant]
  6. DIGOXIN [Concomitant]
  7. CELEXA [Concomitant]
  8. LASIX [Concomitant]
  9. POTASSIUM [Concomitant]

REACTIONS (7)
  - ABDOMINAL PAIN [None]
  - COAGULOPATHY [None]
  - FLANK PAIN [None]
  - HEPATIC FUNCTION ABNORMAL [None]
  - MENTAL STATUS CHANGES [None]
  - PLATELET COUNT DECREASED [None]
  - ROAD TRAFFIC ACCIDENT [None]
